FAERS Safety Report 4289079-8 (Version None)
Quarter: 2004Q1

REPORT INFORMATION
  Report Type: 
  Country: None (occurrence: None)
  Receive Date: 20040130
  Receipt Date: 20031016
  Transmission Date: 20041129
  Serious: No
  Sender: FDA-Public Use
  Company Number: WAES0310USA02049

PATIENT
  Age: 40 Year
  Sex: Female

DRUGS (7)
  1. EMEND [Suspect]
     Indication: CHEMOTHERAPY
     Dosage: 125 MG/1X/PO
     Route: 048
     Dates: start: 20030101
  2. EMEND [Suspect]
     Indication: PROPHYLAXIS
     Dosage: 125 MG/1X/PO
     Route: 048
     Dates: start: 20030101
  3. ANZEMET [Concomitant]
  4. DECARDRON (DEXAMETHASONE SODIUM) [Concomitant]
  5. LEUCOVORIN [Concomitant]
  6. FLUOROURACIL [Concomitant]
  7. IRINOTECAN HYDROCHLORIDE [Concomitant]

REACTIONS (5)
  - CHEST WALL PAIN [None]
  - FEELING ABNORMAL [None]
  - LOCAL SWELLING [None]
  - LYMPHOEDEMA [None]
  - MUSCULOSKELETAL DISCOMFORT [None]
